FAERS Safety Report 7093886-6 (Version None)
Quarter: 2010Q4

REPORT INFORMATION
  Report Type: 
  Country: None (occurrence: None)
  Receive Date: 20101110
  Receipt Date: 20101014
  Transmission Date: 20110411
  Serious: Yes (Hospitalization, Other)
  Sender: FDA-Public Use
  Company Number: US-BAYER-201013716NA

PATIENT
  Age: 19 Year
  Sex: Female
  Weight: 54 kg

DRUGS (6)
  1. OCELLA [Suspect]
     Indication: ACNE
     Route: 048
     Dates: start: 20090107, end: 20091001
  2. ZOLOFT [Concomitant]
     Indication: DEPRESSION
     Route: 065
  3. PERCOCET [Concomitant]
     Dates: start: 20000101
  4. PHENERGAN [Concomitant]
     Dates: start: 20000101
  5. LORTAB [Concomitant]
     Dates: start: 20000101
  6. IBUPROFEN [Concomitant]
     Dates: start: 20000101

REACTIONS (6)
  - ABDOMINAL PAIN [None]
  - COLONIC POLYP [None]
  - DIARRHOEA [None]
  - GALLBLADDER INJURY [None]
  - GASTRITIS [None]
  - HAEMORRHOIDS [None]
